FAERS Safety Report 23902872 (Version 1)
Quarter: 2024Q2

REPORT INFORMATION
  Report Type: Spontaneous
  Country: US (occurrence: US)
  Receive Date: 20240527
  Receipt Date: 20240527
  Transmission Date: 20240716
  Serious: No
  Sender: FDA-Public Use
  Company Number: US-ELI_LILLY_AND_COMPANY-US202405012618

PATIENT
  Age: 41 Year
  Sex: Male

DRUGS (19)
  1. ZEPBOUND [Suspect]
     Active Substance: TIRZEPATIDE
     Indication: Cardiovascular disorder
     Dosage: 10 MG, UNKNOWN
     Route: 065
     Dates: start: 202402
  2. ZEPBOUND [Suspect]
     Active Substance: TIRZEPATIDE
     Indication: Cardiovascular disorder
     Dosage: 10 MG, UNKNOWN
     Route: 065
     Dates: start: 202402
  3. ZEPBOUND [Suspect]
     Active Substance: TIRZEPATIDE
     Indication: Cardiovascular disorder
     Dosage: 10 MG, UNKNOWN
     Route: 065
     Dates: start: 202402
  4. ZEPBOUND [Suspect]
     Active Substance: TIRZEPATIDE
     Indication: Cardiovascular disorder
     Dosage: 10 MG, UNKNOWN
     Route: 065
     Dates: start: 202402
  5. ZEPBOUND [Suspect]
     Active Substance: TIRZEPATIDE
     Indication: Blood cholesterol increased
  6. ZEPBOUND [Suspect]
     Active Substance: TIRZEPATIDE
     Indication: Blood cholesterol increased
  7. ZEPBOUND [Suspect]
     Active Substance: TIRZEPATIDE
     Indication: Blood cholesterol increased
  8. ZEPBOUND [Suspect]
     Active Substance: TIRZEPATIDE
     Indication: Blood cholesterol increased
  9. ZEPBOUND [Suspect]
     Active Substance: TIRZEPATIDE
     Indication: Hypertension
  10. ZEPBOUND [Suspect]
     Active Substance: TIRZEPATIDE
     Indication: Hypertension
  11. ZEPBOUND [Suspect]
     Active Substance: TIRZEPATIDE
     Indication: Hypertension
  12. ZEPBOUND [Suspect]
     Active Substance: TIRZEPATIDE
     Indication: Hypertension
  13. ZEPBOUND [Suspect]
     Active Substance: TIRZEPATIDE
     Indication: Eating disorder
  14. ZEPBOUND [Suspect]
     Active Substance: TIRZEPATIDE
     Indication: Eating disorder
  15. ZEPBOUND [Suspect]
     Active Substance: TIRZEPATIDE
     Indication: Eating disorder
  16. ZEPBOUND [Suspect]
     Active Substance: TIRZEPATIDE
     Indication: Eating disorder
  17. VYVANSE [Concomitant]
     Active Substance: LISDEXAMFETAMINE DIMESYLATE
     Indication: Cardiovascular disorder
  18. VYVANSE [Concomitant]
     Active Substance: LISDEXAMFETAMINE DIMESYLATE
     Indication: Blood cholesterol increased
  19. VYVANSE [Concomitant]
     Active Substance: LISDEXAMFETAMINE DIMESYLATE
     Indication: Hypertension

REACTIONS (4)
  - Off label use [Unknown]
  - Injection site pain [Not Recovered/Not Resolved]
  - Injection site erythema [Not Recovered/Not Resolved]
  - Injection site swelling [Not Recovered/Not Resolved]

NARRATIVE: CASE EVENT DATE: 20240501
